FAERS Safety Report 25523302 (Version 1)
Quarter: 2025Q3

REPORT INFORMATION
  Report Type: Other
  Country: RU (occurrence: RU)
  Receive Date: 20250707
  Receipt Date: 20250707
  Transmission Date: 20251021
  Serious: Yes (Other)
  Sender: Kanchan Healthcare
  Company Number: RU-Kanchan Healthcare INC-2180022

PATIENT
  Age: 50 Year
  Sex: Male

DRUGS (8)
  1. DEXAMETHASONE [Suspect]
     Active Substance: DEXAMETHASONE
     Indication: Plasma cell myeloma
  2. ISATUXIMAB [Suspect]
     Active Substance: ISATUXIMAB
     Dates: start: 202304
  3. CYCLOPHOSPHAMIDE [Concomitant]
     Active Substance: CYCLOPHOSPHAMIDE
  4. BORTEZOMIB [Concomitant]
     Active Substance: BORTEZOMIB
  5. ELOTUZUMAB [Suspect]
     Active Substance: ELOTUZUMAB
  6. LENALIDOMIDE [Suspect]
     Active Substance: LENALIDOMIDE
  7. IXAZOMIB [Suspect]
     Active Substance: IXAZOMIB
  8. POMALIDOMIDE [Suspect]
     Active Substance: POMALIDOMIDE

REACTIONS (5)
  - Neutropenia [Unknown]
  - Drug ineffective for unapproved indication [Unknown]
  - Rebound effect [Recovered/Resolved]
  - Bone pain [Recovered/Resolved]
  - Upper respiratory tract infection [Unknown]
